FAERS Safety Report 14836779 (Version 14)
Quarter: 2021Q4

REPORT INFORMATION
  Report Type: Report from Study
  Country: CA (occurrence: CA)
  Receive Date: 20180502
  Receipt Date: 20211011
  Transmission Date: 20220303
  Serious: Yes (Hospitalization, Other)
  Sender: FDA-Public Use
  Company Number: PHHY2018CA056316

PATIENT
  Age: 54 Year
  Sex: Female
  Weight: 85 kg

DRUGS (14)
  1. COSENTYX [Suspect]
     Active Substance: SECUKINUMAB
     Indication: Psoriasis
     Dosage: 300 MG, QMO
     Route: 058
     Dates: start: 20160324, end: 20160421
  2. COSENTYX [Suspect]
     Active Substance: SECUKINUMAB
     Dosage: 300 MG, QMO
     Route: 058
     Dates: start: 20160519, end: 20180124
  3. COSENTYX [Suspect]
     Active Substance: SECUKINUMAB
     Dosage: 300 MG, QMO
     Route: 058
     Dates: start: 20180321, end: 20190215
  4. COSENTYX [Suspect]
     Active Substance: SECUKINUMAB
     Dosage: 300 MG
     Route: 058
     Dates: start: 20190326, end: 20200115
  5. COSENTYX [Suspect]
     Active Substance: SECUKINUMAB
     Dosage: 300 MG
     Route: 058
     Dates: start: 20200305
  6. GABAPENTIN [Concomitant]
     Active Substance: GABAPENTIN
     Indication: Back pain
     Dosage: 600 MG, TID
     Route: 065
     Dates: start: 201509
  7. MIRTAZAPINE [Concomitant]
     Active Substance: MIRTAZAPINE
     Indication: Depression
     Dosage: 15 MG, QD
     Route: 065
     Dates: start: 2013, end: 20170904
  8. ZOPICLONE [Concomitant]
     Active Substance: ZOPICLONE
     Indication: Insomnia
     Dosage: 7.5 MG, QD
     Route: 065
     Dates: start: 2014
  9. NAPROXEN [Concomitant]
     Active Substance: NAPROXEN
     Indication: Sciatica
     Dosage: 375 MG, PRN
     Route: 065
     Dates: start: 2014
  10. MINOCIN [Concomitant]
     Active Substance: MINOCYCLINE HYDROCHLORIDE
     Indication: Folliculitis
     Dosage: 100 MG, QD
     Route: 065
     Dates: start: 20160518, end: 20160622
  11. PRISTIQ EXTENDED-RELEASE [Concomitant]
     Active Substance: DESVENLAFAXINE SUCCINATE
     Indication: Depression
     Dosage: 500 MG, QD
     Route: 065
     Dates: start: 2013, end: 20160521
  12. PREDNISONE [Concomitant]
     Active Substance: PREDNISONE
     Indication: Product used for unknown indication
     Dosage: UNK
     Route: 065
     Dates: start: 20160218, end: 20160403
  13. PREDNISONE [Concomitant]
     Active Substance: PREDNISONE
     Dosage: UNK
     Route: 065
     Dates: start: 20160404, end: 20160503
  14. BETAMETHASONE DIPROPIONATE [Concomitant]
     Active Substance: BETAMETHASONE DIPROPIONATE
     Indication: Product used for unknown indication
     Dosage: UNK
     Route: 065
     Dates: start: 20200224

REACTIONS (11)
  - Otitis media [Recovered/Resolved with Sequelae]
  - Syncope [Recovered/Resolved]
  - Staphylococcal infection [Recovered/Resolved]
  - Deafness unilateral [Not Recovered/Not Resolved]
  - Deep vein thrombosis [Recovered/Resolved]
  - Haematochezia [Not Recovered/Not Resolved]
  - Skin candida [Recovered/Resolved]
  - Intertrigo [Not Recovered/Not Resolved]
  - Tympanic membrane perforation [Recovered/Resolved]
  - Ear infection [Recovered/Resolved]
  - Otitis media [Recovered/Resolved with Sequelae]

NARRATIVE: CASE EVENT DATE: 20171201
